FAERS Safety Report 5026103-9 (Version None)
Quarter: 2006Q2

REPORT INFORMATION
  Report Type: 
  Country: None (occurrence: None)
  Receive Date: 20060612
  Receipt Date: 20060612
  Transmission Date: 20061013
  Serious: Yes (Life-Threatening, Hospitalization, Disabling, Other)
  Sender: FDA-Public Use
  Company Number: None

PATIENT
  Age: 39 Year
  Sex: Female
  Weight: 98.8842 kg

DRUGS (5)
  1. ZYPREXA [Suspect]
     Indication: BIPOLAR DISORDER
     Dosage: 15 MG 1 PER DAY PO
     Route: 048
     Dates: start: 20010314, end: 20060515
  2. ZYPREXA [Suspect]
     Indication: MENTAL DISORDER
     Dosage: 15 MG 1 PER DAY PO
     Route: 048
     Dates: start: 20010314, end: 20060515
  3. OXYGEN THERAPY [Concomitant]
  4. BYPAP [Concomitant]
  5. RISPERDAL [Concomitant]

REACTIONS (3)
  - ANAEMIA [None]
  - UTERINE HAEMORRHAGE [None]
  - UTERINE LEIOMYOMA [None]
